FAERS Safety Report 16348736 (Version 1)
Quarter: 2019Q2

REPORT INFORMATION
  Report Type: Spontaneous
  Country: FR (occurrence: FR)
  Receive Date: 20190523
  Receipt Date: 20190523
  Transmission Date: 20190711
  Serious: Yes (Other)
  Sender: FDA-Public Use
  Company Number: FR-MYLANLABS-2019M1047608

PATIENT
  Age: 82 Year
  Sex: Female

DRUGS (1)
  1. MEMANTINE. [Suspect]
     Active Substance: MEMANTINE
     Indication: DEMENTIA ALZHEIMER^S TYPE
     Dosage: 20 MILLIGRAM, QD
     Route: 048
     Dates: start: 201612, end: 201807

REACTIONS (2)
  - Product administration interrupted [Recovered/Resolved]
  - Dementia Alzheimer^s type [Recovering/Resolving]

NARRATIVE: CASE EVENT DATE: 201807
